FAERS Safety Report 9691793 (Version 1)
Quarter: 2013Q4

REPORT INFORMATION
  Report Type: Spontaneous
  Country: IN (occurrence: IN)
  Receive Date: 20131115
  Receipt Date: 20131115
  Transmission Date: 20140711
  Serious: Yes (Life-Threatening)
  Sender: FDA-Public Use
  Company Number: IN-ASTRAZENECA-2013SE83831

PATIENT
  Age: 65 Year
  Sex: Female

DRUGS (4)
  1. BRILINTA [Suspect]
     Route: 048
     Dates: start: 20131003, end: 20131112
  2. AMLODIPINE [Concomitant]
  3. STATINS [Concomitant]
  4. ASPIRIN [Concomitant]

REACTIONS (3)
  - Haemoglobin decreased [Unknown]
  - Circulatory collapse [Unknown]
  - Melaena [Unknown]
